FAERS Safety Report 17949979 (Version 1)
Quarter: 2020Q2

REPORT INFORMATION
  Report Type: Report from Study
  Country: None (occurrence: CO)
  Receive Date: 20200626
  Receipt Date: 20200626
  Transmission Date: 20200714
  Serious: Yes (Hospitalization, Other)
  Sender: FDA-Public Use
  Company Number: CO-ABBVIE-20K-036-3460973-00

PATIENT
  Age: 34 Year
  Sex: Male
  Weight: 57 kg

DRUGS (1)
  1. ZEMPLAR [Suspect]
     Active Substance: PARICALCITOL
     Indication: HYPERPARATHYROIDISM
     Dosage: POST DIALYSIS
     Route: 042
     Dates: start: 20191120

REACTIONS (6)
  - Gastric ulcer [Recovering/Resolving]
  - Gastric infection [Recovering/Resolving]
  - Seizure [Recovering/Resolving]
  - Unevaluable event [Unknown]
  - Haematemesis [Recovering/Resolving]
  - Diabetic neuropathy [Recovering/Resolving]

NARRATIVE: CASE EVENT DATE: 202002
